FAERS Safety Report 16472496 (Version 1)
Quarter: 2019Q2

REPORT INFORMATION
  Report Type: Spontaneous
  Country: US (occurrence: US)
  Receive Date: 20190625
  Receipt Date: 20190625
  Transmission Date: 20190711
  Serious: Yes (Hospitalization, Other)
  Sender: FDA-Public Use
  Company Number: US-BAYER-2019-103981

PATIENT
  Age: 28 Year
  Sex: Female

DRUGS (2)
  1. ACETYLSALICYLIC ACID (PAIN AND FEVER) [Suspect]
     Active Substance: ASPIRIN
     Indication: SUICIDE ATTEMPT
     Dosage: 5 G, ONCE IN 1 HOUR
     Route: 048
  2. PARACETAMOL [Suspect]
     Active Substance: ACETAMINOPHEN
     Indication: SUICIDE ATTEMPT
     Dosage: 50 G, ONCE IN 1 HOUR; ADDITIONAL INFO: OVERDOSE, MISUSE;
     Route: 048

REACTIONS (13)
  - Overdose [Unknown]
  - Hepatotoxicity [Unknown]
  - Maternal exposure during pregnancy [Unknown]
  - Coagulation time prolonged [Recovered/Resolved]
  - Maternal exposure during pregnancy [None]
  - Drug abuse [Unknown]
  - Metabolic acidosis [Recovered/Resolved]
  - Blood disorder [Unknown]
  - Premature delivery [Unknown]
  - Toxicity to various agents [Unknown]
  - Respiratory alkalosis [Recovered/Resolved]
  - Hypoacusis [Unknown]
  - Caesarean section [Unknown]
